FAERS Safety Report 9029856 (Version 1)
Quarter: 2013Q1

REPORT INFORMATION
  Report Type: Spontaneous
  Country: US (occurrence: US)
  Receive Date: 20130124
  Receipt Date: 20130124
  Transmission Date: 20140127
  Serious: Yes (Death, Hospitalization)
  Sender: FDA-Public Use
  Company Number: US-GILEAD-2013-0067744

PATIENT
  Age: 56 Year
  Sex: Male

DRUGS (1)
  1. LETAIRIS [Suspect]
     Indication: PORTOPULMONARY HYPERTENSION
     Dosage: 5 MG, QD
     Dates: start: 20121212

REACTIONS (5)
  - Death [Fatal]
  - Renal failure acute [Unknown]
  - Blood bilirubin increased [Unknown]
  - Swelling [Not Recovered/Not Resolved]
  - Oedema [Unknown]
